FAERS Safety Report 10460976 (Version 1)
Quarter: 2014Q3

REPORT INFORMATION
  Report Type: Spontaneous
  Country: US (occurrence: None)
  Receive Date: 20140917
  Receipt Date: 20140917
  Transmission Date: 20150326
  Serious: No
  Sender: FDA-Public Use
  Company Number: None

PATIENT

DRUGS (1)
  1. LITHOBID [Suspect]
     Active Substance: LITHIUM CARBONATE

REACTIONS (5)
  - Drug dispensed to wrong patient [None]
  - Nausea [None]
  - Asthenia [None]
  - Fatigue [None]
  - Wrong drug administered [None]
